FAERS Safety Report 18960893 (Version 1)
Quarter: 2021Q1

REPORT INFORMATION
  Report Type: Spontaneous
  Country: TR (occurrence: TR)
  Receive Date: 20210302
  Receipt Date: 20210302
  Transmission Date: 20210420
  Serious: Yes (Other)
  Sender: FDA-Public Use
  Company Number: TR-ELI_LILLY_AND_COMPANY-TR202102010576

PATIENT
  Age: 61 Year
  Sex: Female

DRUGS (2)
  1. COPELLOR 80MG [Suspect]
     Active Substance: IXEKIZUMAB
     Dosage: 80 MG, UNKNOWN
     Route: 065
  2. COPELLOR 80MG [Suspect]
     Active Substance: IXEKIZUMAB
     Indication: PSORIASIS
     Dosage: 160 MG, UNKNOWN (UNTIL 12TH WEEK)
     Route: 065

REACTIONS (3)
  - Eczema [Unknown]
  - Overdose [Unknown]
  - Inappropriate schedule of product administration [Unknown]
